FAERS Safety Report 7281711-X (Version None)
Quarter: 2011Q1

REPORT INFORMATION
  Report Type: 
  Country: None (occurrence: None)
  Receive Date: 20110208
  Receipt Date: 20110127
  Transmission Date: 20110831
  Serious: Yes (Other)
  Sender: FDA-Public Use
  Company Number: US-ASTRAZENECA-2011SE04753

PATIENT
  Age: 63 Year
  Sex: Female
  Weight: 49.4 kg

DRUGS (1)
  1. NEXIUM [Suspect]
     Indication: DYSPEPSIA
     Route: 048

REACTIONS (2)
  - DRUG DOSE OMISSION [None]
  - LUNG NEOPLASM MALIGNANT [None]
